FAERS Safety Report 5924925-0 (Version None)
Quarter: 2008Q4

REPORT INFORMATION
  Report Type: 
  Country: None (occurrence: None)
  Receive Date: 20081020
  Receipt Date: 20081020
  Transmission Date: 20090506
  Serious: Yes (Other)
  Sender: FDA-Public Use
  Company Number: None

PATIENT
  Age: 43 Year
  Sex: Male
  Weight: 80.7403 kg

DRUGS (1)
  1. PULMICORT [Suspect]
     Indication: CHRONIC OBSTRUCTIVE PULMONARY DISEASE
     Dosage: 0.25MG/2ML 2X'S A DAY OTHER
     Route: 050
     Dates: start: 20071224, end: 20080823

REACTIONS (4)
  - APHONIA [None]
  - DYSPNOEA EXERTIONAL [None]
  - LUNG DISORDER [None]
  - OXYGEN SATURATION DECREASED [None]
